FAERS Safety Report 5873477-2 (Version None)
Quarter: 2008Q3

REPORT INFORMATION
  Report Type: 
  Country: None (occurrence: None)
  Receive Date: 20080908
  Receipt Date: 20080807
  Transmission Date: 20090109
  Serious: No
  Sender: FDA-Public Use
  Company Number: US-BAYER-200830841NA

PATIENT
  Age: 35 Year
  Sex: Female

DRUGS (1)
  1. MIRENA [Suspect]
     Indication: CONTRACEPTION
     Route: 015
     Dates: start: 20061101

REACTIONS (5)
  - ABDOMINAL DISTENSION [None]
  - AMENORRHOEA [None]
  - DIARRHOEA [None]
  - FATIGUE [None]
  - STOMACH DISCOMFORT [None]
